FAERS Safety Report 4816537-7 (Version None)
Quarter: 2005Q4

REPORT INFORMATION
  Report Type: 
  Country: None (occurrence: None)
  Receive Date: 20051101
  Receipt Date: 20051021
  Transmission Date: 20060501
  Serious: Yes (Other)
  Sender: FDA-Public Use
  Company Number: PHEH2005US11921

PATIENT
  Age: 69 Year
  Sex: Male

DRUGS (6)
  1. LIPITOR                                 /NET/ [Concomitant]
  2. LISINOPRIL [Concomitant]
  3. NEXIUM [Concomitant]
  4. GLIPIZIDE [Concomitant]
  5. CLARINEX /USA/ [Concomitant]
  6. LAMISIL [Suspect]
     Indication: NAIL TINEA
     Dosage: 250 MG, QD
     Route: 048
     Dates: start: 20040901

REACTIONS (3)
  - DIABETES MELLITUS [None]
  - DRUG INEFFECTIVE [None]
  - PARKINSON'S DISEASE [None]
